FAERS Safety Report 8224582-7 (Version None)
Quarter: 2012Q1

REPORT INFORMATION
  Report Type: 
  Country: None (occurrence: None)
  Receive Date: 20120321
  Receipt Date: 20120309
  Transmission Date: 20120608
  Serious: Yes (Hospitalization)
  Sender: FDA-Public Use
  Company Number: FR-ELI_LILLY_AND_COMPANY-FR201203002537

PATIENT
  Age: 88 Year
  Sex: Female

DRUGS (13)
  1. VITAMIN D [Concomitant]
     Indication: VITAMIN D DEFICIENCY
     Dosage: 100.000 IU, MONTHLY (1/M)
     Route: 048
     Dates: start: 20120112
  2. ZYPREXA [Suspect]
     Dosage: 5 MG, QD
     Route: 048
     Dates: start: 20120111, end: 20120120
  3. OXAZEPAM [Concomitant]
     Indication: ABNORMAL BEHAVIOUR
     Dosage: 20 MG, QD
     Dates: start: 20111201
  4. MEMANTINE HYDROCHLORIDE [Concomitant]
     Indication: SENILE DEMENTIA
     Dosage: 10 MG, QD
     Dates: start: 20120112, end: 20120120
  5. MEMANTINE HYDROCHLORIDE [Concomitant]
     Dosage: 10 MG, QD
     Dates: start: 20120124
  6. MOVIPREP [Concomitant]
     Indication: CONSTIPATION
     Dosage: 2 DF, QD
     Route: 048
     Dates: start: 20120101
  7. FURADANTIN [Concomitant]
     Indication: URINARY TRACT INFECTION
     Dosage: 300 MG, QD
     Route: 048
     Dates: start: 20120106, end: 20120113
  8. ASPIRIN [Concomitant]
     Dosage: UNK
     Route: 048
  9. MIRTAZAPINE [Concomitant]
     Dosage: 15 MG, QD
     Route: 048
     Dates: start: 20120106
  10. IMOVANE [Concomitant]
     Dosage: 1 DF, QD
     Route: 048
     Dates: start: 20120106
  11. ZYPREXA [Suspect]
     Dosage: 5 MG, QD
     Route: 065
     Dates: start: 20120124
  12. ESCITALOPRAM OXALATE [Concomitant]
     Indication: ABNORMAL BEHAVIOUR
     Dosage: UNK
     Dates: start: 20120104, end: 20120106
  13. ACETAMINOPHEN [Concomitant]
     Dosage: UNK, PRN
     Dates: start: 20120101

REACTIONS (4)
  - CONFUSIONAL STATE [None]
  - ABNORMAL BEHAVIOUR [None]
  - AGGRESSION [None]
  - HYPERTENSION [None]
